FAERS Safety Report 9200421 (Version 1)
Quarter: 2013Q1

REPORT INFORMATION
  Report Type: Other
  Country: GB (occurrence: GB)
  Receive Date: 20130329
  Receipt Date: 20130329
  Transmission Date: 20140127
  Serious: Yes (Hospitalization, Disabling)
  Sender: FDA-Public Use
  Company Number: GB-WATSON-2013-04983

PATIENT
  Age: 49 Year
  Sex: Female
  Weight: 60 kg

DRUGS (2)
  1. OMEPRAZOLE (UNKNOWN) [Suspect]
     Indication: ABDOMINAL PAIN
     Dosage: 20 MG, DAILY
     Route: 048
     Dates: start: 20121227, end: 20130113
  2. ELLESTE-SOLO [Concomitant]
     Indication: PRODUCT USED FOR UNKNOWN INDICATION
     Dosage: UNKNOWN
     Route: 065

REACTIONS (6)
  - Jaundice cholestatic [Recovering/Resolving]
  - Cholelithiasis [Recovered/Resolved]
  - Chromaturia [Recovered/Resolved]
  - Faeces discoloured [Recovered/Resolved]
  - Pruritus [Recovering/Resolving]
  - Abdominal pain [Recovered/Resolved]
